FAERS Safety Report 23366004 (Version 1)
Quarter: 2024Q1

REPORT INFORMATION
  Report Type: Spontaneous
  Country: US (occurrence: None)
  Receive Date: 20240104
  Receipt Date: 20240104
  Transmission Date: 20240410
  Serious: No
  Sender: FDA-Public Use
  Company Number: None

PATIENT
  Age: 42 Year
  Sex: Female
  Weight: 75.6 kg

DRUGS (14)
  1. TIRZEPATIDE [Suspect]
     Active Substance: TIRZEPATIDE
     Indication: Obesity
     Dosage: OTHER QUANTITY : 0.5 ML;?FREQUENCY : WEEKLY;?
     Route: 058
     Dates: start: 20230301
  2. PROPRANOLOL [Concomitant]
     Active Substance: PROPRANOLOL HYDROCHLORIDE
  3. LISINOPRIL [Concomitant]
     Active Substance: LISINOPRIL
  4. CRESTOR [Concomitant]
     Active Substance: ROSUVASTATIN CALCIUM
  5. NURTEC ODT [Concomitant]
     Active Substance: RIMEGEPANT SULFATE
  6. BOTOX [Concomitant]
     Active Substance: ONABOTULINUMTOXINA
  7. FROVATRIPTAN [Concomitant]
     Active Substance: FROVATRIPTAN
  8. TIRZEPATIDE [Concomitant]
     Active Substance: TIRZEPATIDE
  9. ARMOUR THYROID [Concomitant]
     Active Substance: THYROID, PORCINE
  10. VITAMINS D3 [Concomitant]
  11. VITAMINS [Concomitant]
     Active Substance: VITAMINS
  12. CAFFEINE [Concomitant]
     Active Substance: CAFFEINE
  13. BIOTIN [Concomitant]
     Active Substance: BIOTIN
  14. IBUPROFEN [Concomitant]
     Active Substance: IBUPROFEN

REACTIONS (1)
  - Alopecia [None]

NARRATIVE: CASE EVENT DATE: 20230301
